FAERS Safety Report 25171365 (Version 3)
Quarter: 2025Q3

REPORT INFORMATION
  Report Type: Report from Study
  Country: US (occurrence: US)
  Receive Date: 20250408
  Receipt Date: 20250714
  Transmission Date: 20251020
  Serious: Yes (Congenital Anomaly, Other)
  Sender: GILEAD
  Company Number: US-GILEAD-2025-0709318

PATIENT
  Sex: Male

DRUGS (2)
  1. BICTEGRAVIR\EMTRICITABINE\TENOFOVIR ALAFENAMIDE [Suspect]
     Active Substance: BICTEGRAVIR\EMTRICITABINE\TENOFOVIR ALAFENAMIDE
     Indication: HIV infection
     Dosage: 275 MG, QD
     Route: 064
  2. ENOXAPARIN [Concomitant]
     Active Substance: ENOXAPARIN

REACTIONS (7)
  - Congenital tricuspid valve atresia [Unknown]
  - Hypoplastic left heart syndrome [Unknown]
  - Congenital aortic atresia [Unknown]
  - Foetal exposure during pregnancy [Recovered/Resolved]
  - Mitral valve atresia [Unknown]
  - Patent ductus arteriosus [Unknown]
  - Hypoplastic right heart syndrome [Unknown]
